FAERS Safety Report 25273496 (Version 1)
Quarter: 2025Q2

REPORT INFORMATION
  Report Type: Spontaneous
  Country: FR (occurrence: FR)
  Receive Date: 20250506
  Receipt Date: 20250506
  Transmission Date: 20250716
  Serious: Yes (Life-Threatening, Hospitalization, Disabling, Other)
  Sender: BRISTOL-MYERS SQUIBB COMPANY
  Company Number: None

PATIENT
  Age: 73 Year
  Sex: Male
  Weight: 100 kg

DRUGS (6)
  1. IPILIMUMAB [Suspect]
     Active Substance: IPILIMUMAB
     Indication: Biphasic mesothelioma
     Route: 042
     Dates: start: 20250402, end: 20250402
  2. NIVOLUMAB [Suspect]
     Active Substance: NIVOLUMAB
     Indication: Biphasic mesothelioma
     Route: 042
     Dates: start: 20250402, end: 20250402
  3. CARBOPLATIN [Concomitant]
     Active Substance: CARBOPLATIN
     Indication: Biphasic mesothelioma
     Route: 042
     Dates: start: 20250402, end: 20250402
  4. PEMETREXED [Concomitant]
     Active Substance: PEMETREXED
     Indication: Biphasic mesothelioma
     Route: 042
     Dates: start: 20250402, end: 20250402
  5. CANDESARTAN CILEXETIL [Concomitant]
     Active Substance: CANDESARTAN CILEXETIL
     Indication: Hypertension
     Route: 048
  6. RABEPRAZOLE SODIUM [Concomitant]
     Active Substance: RABEPRAZOLE SODIUM
     Indication: Hiatus hernia
     Route: 048

REACTIONS (3)
  - Myocarditis [Recovering/Resolving]
  - Muscular weakness [Recovering/Resolving]
  - Myositis [Recovering/Resolving]

NARRATIVE: CASE EVENT DATE: 20250416
